FAERS Safety Report 7325445-1 (Version None)
Quarter: 2011Q1

REPORT INFORMATION
  Report Type: 
  Country: None (occurrence: None)
  Receive Date: 20110302
  Receipt Date: 20110222
  Transmission Date: 20110831
  Serious: Yes (Other)
  Sender: FDA-Public Use
  Company Number: US-US-EMD SERONO, INC.-7036375

PATIENT
  Sex: Female
  Weight: 53 kg

DRUGS (8)
  1. REBIF [Suspect]
     Indication: MULTIPLE SCLEROSIS
     Route: 058
     Dates: start: 20091103
  2. DAILY WOMEN'S VITAMIN [Concomitant]
     Indication: PROPHYLAXIS
  3. ASPIRIN [Concomitant]
     Indication: PREMEDICATION
  4. CYSTEX [Concomitant]
     Indication: VULVOVAGINAL PRURITUS
  5. REBIF [Suspect]
     Dates: start: 20100301, end: 20110101
  6. SYNTHROID [Concomitant]
     Indication: AUTOIMMUNE THYROIDITIS
     Dates: start: 19800101
  7. SYNTHROID [Concomitant]
     Indication: HYPOTHYROIDISM
  8. SYMBICORT [Concomitant]
     Dates: start: 20101001

REACTIONS (8)
  - PULMONARY OEDEMA [None]
  - VITAMIN D DECREASED [None]
  - URTICARIA [None]
  - CONTUSION [None]
  - ANGIOEDEMA [None]
  - SKIN DISCOLOURATION [None]
  - GAIT DISTURBANCE [None]
  - HYPOXIA [None]
